FAERS Safety Report 17446798 (Version 1)
Quarter: 2020Q1

REPORT INFORMATION
  Report Type: Spontaneous
  Country: CN (occurrence: CN)
  Receive Date: 20200221
  Receipt Date: 20200221
  Transmission Date: 20200409
  Serious: Yes (Other)
  Sender: FDA-Public Use
  Company Number: CN-BAYER-2020-028626

PATIENT
  Age: 84 Year
  Sex: Male
  Weight: 70 kg

DRUGS (1)
  1. AVELOX [Suspect]
     Active Substance: MOXIFLOXACIN HYDROCHLORIDE
     Indication: URINARY TRACT INFECTION
     Dosage: 400 MG, QD
     Route: 041
     Dates: start: 20191116

REACTIONS (4)
  - Depressed level of consciousness [Recovering/Resolving]
  - Product use in unapproved indication [None]
  - Off label use [None]
  - Confusional state [Recovering/Resolving]

NARRATIVE: CASE EVENT DATE: 201911
